FAERS Safety Report 5259174-5 (Version None)
Quarter: 2007Q1

REPORT INFORMATION
  Report Type: 
  Country: None (occurrence: None)
  Receive Date: 20070308
  Receipt Date: 20070226
  Transmission Date: 20070707
  Serious: Yes (Congenital Anomaly)
  Sender: FDA-Public Use
  Company Number: GB-JNJFOC-20070206414

PATIENT
  Sex: Male
  Weight: 2.46 kg

DRUGS (3)
  1. TOPIRAMATE [Suspect]
     Indication: DRUG EXPOSURE DURING PREGNANCY
     Route: 064
  2. KEPPRA [Suspect]
     Indication: DRUG EXPOSURE DURING PREGNANCY
     Route: 064
  3. LAMOTRIGINE [Suspect]
     Indication: DRUG EXPOSURE DURING PREGNANCY
     Route: 064

REACTIONS (3)
  - PREMATURE BABY [None]
  - PYLORIC STENOSIS [None]
  - SMALL FOR DATES BABY [None]
